FAERS Safety Report 5822984-7 (Version None)
Quarter: 2008Q3

REPORT INFORMATION
  Report Type: 
  Country: None (occurrence: None)
  Receive Date: 20080725
  Receipt Date: 20080715
  Transmission Date: 20090109
  Serious: Yes (Other)
  Sender: FDA-Public Use
  Company Number: B0361000A

PATIENT
  Age: 34 Year
  Sex: Male

DRUGS (7)
  1. PAROXETINE HCL [Suspect]
     Indication: DEPRESSION
     Dosage: 20MG PER DAY
     Route: 065
     Dates: start: 20010905
  2. PAROXETINE HCL [Suspect]
  3. HALOPERIDOL [Concomitant]
     Route: 065
  4. MEPTAZINOL [Concomitant]
     Dosage: 200MG FOUR TIMES PER DAY
     Route: 065
  5. TRAMADOL HCL [Concomitant]
     Route: 065
  6. NAPROXEN [Concomitant]
     Dosage: 500MG TWICE PER DAY
     Route: 065
  7. ZOLPIDEM [Concomitant]
     Dosage: 10MG AT NIGHT
     Route: 065

REACTIONS (18)
  - AGGRESSION [None]
  - AGITATION [None]
  - APATHY [None]
  - CONFUSIONAL STATE [None]
  - DISTURBANCE IN ATTENTION [None]
  - DRUG WITHDRAWAL SYNDROME [None]
  - FATIGUE [None]
  - HYPERHIDROSIS [None]
  - INFLUENZA [None]
  - LETHARGY [None]
  - LOSS OF LIBIDO [None]
  - MEMORY IMPAIRMENT [None]
  - NIGHTMARE [None]
  - PARAESTHESIA [None]
  - SLEEP DISORDER [None]
  - SUICIDAL IDEATION [None]
  - TENSION [None]
  - TREMOR [None]
